FAERS Safety Report 20956646 (Version 2)
Quarter: 2022Q3

REPORT INFORMATION
  Report Type: Spontaneous
  Country: TR (occurrence: TR)
  Receive Date: 20220614
  Receipt Date: 20220701
  Transmission Date: 20221026
  Serious: Yes (Hospitalization, Other)
  Sender: FDA-Public Use
  Company Number: TR-SUN PHARMACEUTICAL INDUSTRIES LTD-2022RR-340674

PATIENT
  Age: 12 Year
  Sex: Female

DRUGS (3)
  1. CLARITHROMYCIN [Suspect]
     Active Substance: CLARITHROMYCIN
     Indication: Cat scratch disease
     Dosage: UNK
     Route: 048
  2. MONODOX [Suspect]
     Active Substance: DOXYCYCLINE
     Indication: Cat scratch disease
     Dosage: UNK
     Route: 065
  3. Rifcap (Kocak Farma) [Concomitant]
     Indication: Cat scratch disease
     Dosage: UNK
     Route: 065

REACTIONS (3)
  - Jarisch-Herxheimer reaction [Unknown]
  - Condition aggravated [Recovered/Resolved]
  - Drug ineffective [Unknown]
